FAERS Safety Report 21829535 (Version 2)
Quarter: 2023Q1

REPORT INFORMATION
  Report Type: Report from Study
  Country: CA (occurrence: CA)
  Receive Date: 20230106
  Receipt Date: 20230306
  Transmission Date: 20230418
  Serious: Yes (Hospitalization, Other)
  Sender: FDA-Public Use
  Company Number: CA-JNJFOC-20220925462

PATIENT
  Age: 6 Decade
  Sex: Male

DRUGS (2)
  1. STELARA [Suspect]
     Active Substance: USTEKINUMAB
     Indication: Crohn^s disease
     Dosage: THERAPY START DATE ALSO REPORTED AS 12-OCT-2021 AND 07-NOV-2022.? EXPIRY DATE: 30-JUN-2025, 01-JUN-
     Route: 058
     Dates: start: 20211008
  2. STELARA [Suspect]
     Active Substance: USTEKINUMAB

REACTIONS (4)
  - Stoma site infection [Unknown]
  - Fungal infection [Unknown]
  - Haematological infection [Unknown]
  - Colostomy [Unknown]
